FAERS Safety Report 22087938 (Version 1)
Quarter: 2023Q1

REPORT INFORMATION
  Report Type: Other
  Country: CA (occurrence: CA)
  Receive Date: 20230313
  Receipt Date: 20230313
  Transmission Date: 20230417
  Serious: Yes (Death, Other)
  Sender: FDA-Public Use
  Company Number: CA-APOTEX-2023AP004835

PATIENT
  Age: 67 Year
  Sex: Female

DRUGS (1)
  1. LENALIDOMIDE [Suspect]
     Active Substance: LENALIDOMIDE
     Indication: Plasma cell myeloma refractory
     Dosage: 15 MILLIGRAM, QD
     Route: 048
     Dates: start: 20220505, end: 2022

REACTIONS (4)
  - Death [Fatal]
  - Hallucination [Unknown]
  - Confusional state [Unknown]
  - Haematuria [Unknown]

NARRATIVE: CASE EVENT DATE: 20221210
